FAERS Safety Report 19949174 (Version 1)
Quarter: 2021Q4

REPORT INFORMATION
  Report Type: Spontaneous
  Country: US (occurrence: US)
  Receive Date: 20211011
  Receipt Date: 20211011
  Transmission Date: 20220303
  Serious: No
  Sender: FDA-Public Use
  Company Number: None

PATIENT
  Sex: Female

DRUGS (1)
  1. SIMPONI [Suspect]
     Active Substance: GOLIMUMAB
     Indication: Rheumatoid arthritis
     Dosage: ?          OTHER DOSE:50MG/0.5ML ;
     Route: 058
     Dates: start: 20210518

REACTIONS (3)
  - Joint swelling [None]
  - Arthralgia [None]
  - Therapy non-responder [None]
